FAERS Safety Report 24238440 (Version 3)
Quarter: 2024Q3

REPORT INFORMATION
  Report Type: Spontaneous
  Country: US (occurrence: US)
  Receive Date: 20240822
  Receipt Date: 20240822
  Transmission Date: 20241017
  Serious: No
  Sender: DERMAVANT SCIENCES
  Company Number: US-Dermavant-001217

PATIENT
  Age: 66 Year
  Sex: Female

DRUGS (3)
  1. VTAMA [Suspect]
     Active Substance: TAPINAROF
     Indication: Psoriasis
     Route: 061
     Dates: start: 20240615, end: 20240615
  2. TELMISARTAN [Concomitant]
     Active Substance: TELMISARTAN
     Route: 048
  3. LOVASTATIN [Concomitant]
     Active Substance: LOVASTATIN
     Route: 048

REACTIONS (5)
  - Skin exfoliation [Unknown]
  - Application site pruritus [Unknown]
  - Application site vesicles [Unknown]
  - Application site erythema [Unknown]
  - Application site swelling [Unknown]

NARRATIVE: CASE EVENT DATE: 20240616
